FAERS Safety Report 4874793-3 (Version None)
Quarter: 2006Q1

REPORT INFORMATION
  Report Type: 
  Country: None (occurrence: None)
  Receive Date: 20060104
  Receipt Date: 20051220
  Transmission Date: 20060701
  Serious: Yes (Hospitalization, Other)
  Sender: FDA-Public Use
  Company Number: 2005166267

PATIENT
  Sex: Male

DRUGS (4)
  1. PHENYTOIN SODIUM [Suspect]
     Indication: EPILEPSY
     Dosage: 200 MG (100 MG,  2 IN  1 D); ORAL
     Route: 048
  2. COMITAL (METHYLPHENOBARBITAL, PHENYTOIN) [Suspect]
     Indication: EPILEPSY
  3. PHENOBARBITAL TAB [Suspect]
     Indication: ILL-DEFINED DISORDER
  4. HIDANTAL (PHENYTOIN) [Suspect]
     Indication: ILL-DEFINED DISORDER

REACTIONS (8)
  - AGITATION [None]
  - CEREBRAL ISCHAEMIA [None]
  - CONDITION AGGRAVATED [None]
  - CONVULSION [None]
  - FALL [None]
  - FEMUR FRACTURE [None]
  - LOWER LIMB FRACTURE [None]
  - OSTEOPOROSIS [None]
